FAERS Safety Report 13818987 (Version 1)
Quarter: 2017Q3

REPORT INFORMATION
  Report Type: Report from Study
  Country: US (occurrence: US)
  Receive Date: 20170731
  Receipt Date: 20170731
  Transmission Date: 20171127
  Serious: No
  Sender: FDA-Public Use
  Company Number: US-EXELIXIS-CABO-17009067

PATIENT
  Sex: Female

DRUGS (9)
  1. OXYCODONE [Concomitant]
     Active Substance: OXYCODONE
  2. ONDANSETRON [Concomitant]
     Active Substance: ONDANSETRON
  3. LORAZEPAM. [Concomitant]
     Active Substance: LORAZEPAM
  4. LEVOTHYROXIN [Concomitant]
     Active Substance: LEVOTHYROXINE
  5. CABOMETYX [Suspect]
     Active Substance: CABOZANTINIB S-MALATE
     Indication: BONE CANCER
  6. CABOMETYX [Suspect]
     Active Substance: CABOZANTINIB S-MALATE
     Indication: RENAL CANCER
     Dosage: 40 MG, QD
     Route: 048
     Dates: start: 20170202
  7. PREDNISONE. [Concomitant]
     Active Substance: PREDNISONE
  8. FENTANYL. [Concomitant]
     Active Substance: FENTANYL
  9. DRONABINOL. [Concomitant]
     Active Substance: DRONABINOL

REACTIONS (3)
  - Feeding disorder [Unknown]
  - Vomiting [Unknown]
  - Constipation [Unknown]
